FAERS Safety Report 7247390-2 (Version None)
Quarter: 2011Q1

REPORT INFORMATION
  Report Type: 
  Country: None (occurrence: None)
  Receive Date: 20110127
  Receipt Date: 20110118
  Transmission Date: 20110831
  Serious: Yes (Hospitalization)
  Sender: FDA-Public Use
  Company Number: PHHY2011FR04551

PATIENT
  Sex: Female

DRUGS (8)
  1. ZOMETA [Suspect]
     Dosage: UNK
     Route: 042
     Dates: start: 20080615, end: 20091001
  2. AMLOR [Concomitant]
     Dosage: UNK
  3. SERESTA [Concomitant]
     Dosage: UNK
  4. SEROPRAM [Concomitant]
     Dosage: UNK
  5. AVLOCARDYL [Concomitant]
     Dosage: UNK
  6. LEVOTHYROX [Concomitant]
     Dosage: 100 UG, UNK
  7. IODINE (131 I) [Concomitant]
     Indication: OSTEITIS
     Dosage: 1 MCI, UNK
     Dates: start: 20090101
  8. VENTOLIN [Concomitant]
     Dosage: UNK

REACTIONS (4)
  - EATING DISORDER [None]
  - WEIGHT DECREASED [None]
  - OSTEITIS [None]
  - PAIN IN JAW [None]
